FAERS Safety Report 7529229-0 (Version None)
Quarter: 2011Q2

REPORT INFORMATION
  Report Type: 
  Country: None (occurrence: None)
  Receive Date: 20110607
  Receipt Date: 20110527
  Transmission Date: 20111010
  Serious: Yes (Hospitalization)
  Sender: FDA-Public Use
  Company Number: FR-JNJFOC-20110600228

PATIENT
  Age: 88 Year
  Sex: Female

DRUGS (9)
  1. LEVOFLOXACIN [Suspect]
     Indication: ENDOPHTHALMITIS
     Route: 042
     Dates: start: 20110505
  2. CILASTATIN W/IMIPENEM [Suspect]
     Indication: ENDOPHTHALMITIS
     Route: 042
     Dates: start: 20110505
  3. FENTANYL [Concomitant]
     Route: 065
  4. LEVOTHYROXINE SODIUM [Concomitant]
     Route: 065
  5. COUMADIN [Concomitant]
     Route: 065
     Dates: start: 20110509
  6. RAMIPRIL [Concomitant]
     Route: 065
  7. UNKNOWN MEDICATION [Concomitant]
     Route: 065
  8. ASPIRIN [Concomitant]
     Route: 065
  9. LOVENOX [Concomitant]
     Route: 065
     Dates: start: 20110504, end: 20110509

REACTIONS (1)
  - CHOLESTASIS [None]
